FAERS Safety Report 5708304-7 (Version None)
Quarter: 2008Q2

REPORT INFORMATION
  Report Type: 
  Country: None (occurrence: None)
  Receive Date: 20080417
  Receipt Date: 20080408
  Transmission Date: 20081010
  Serious: Yes (Other)
  Sender: FDA-Public Use
  Company Number: US-ELI_LILLY_AND_COMPANY-US200803000180

PATIENT
  Sex: Female

DRUGS (5)
  1. FORTEO [Suspect]
     Indication: OSTEOARTHRITIS
     Dosage: UNK, UNK
     Route: 058
     Dates: start: 20080101
  2. FORTEO [Suspect]
  3. EVISTA [Suspect]
     Dosage: UNK, UNK
     Route: 048
  4. CELEBREX [Concomitant]
  5. CALCIUM [Concomitant]

REACTIONS (6)
  - ASTHENIA [None]
  - BONE DISORDER [None]
  - DRUG INEFFECTIVE [None]
  - FATIGUE [None]
  - LOSS OF CONSCIOUSNESS [None]
  - ROAD TRAFFIC ACCIDENT [None]
